FAERS Safety Report 7505305-3 (Version None)
Quarter: 2011Q2

REPORT INFORMATION
  Report Type: 
  Country: None (occurrence: None)
  Receive Date: 20110526
  Receipt Date: 20110523
  Transmission Date: 20111010
  Serious: No
  Sender: FDA-Public Use
  Company Number: US-PFIZER INC-2011082578

PATIENT
  Sex: Female

DRUGS (2)
  1. TAMBOCOR [Suspect]
     Dosage: UNK
     Route: 048
     Dates: start: 20060101
  2. TIKOSYN [Suspect]
     Indication: CARDIAC DISORDER
     Dosage: UNK
     Route: 048
     Dates: start: 20090101

REACTIONS (1)
  - RASH [None]
